FAERS Safety Report 9140275 (Version 1)
Quarter: 2013Q1

REPORT INFORMATION
  Report Type: Spontaneous
  Country: US (occurrence: US)
  Receive Date: 20130207
  Receipt Date: 20130207
  Transmission Date: 20140127
  Serious: No
  Sender: FDA-Public Use
  Company Number: US-ALLERGAN-1206884US

PATIENT
  Sex: Female

DRUGS (1)
  1. RESTASIS [Suspect]
     Indication: DRY EYE
     Dosage: UNK UNK, BID
     Route: 047

REACTIONS (3)
  - Erythema [Unknown]
  - Burning sensation [Unknown]
  - Wrong technique in drug usage process [Unknown]
